FAERS Safety Report 4858024-6 (Version None)
Quarter: 2005Q4

REPORT INFORMATION
  Report Type: 
  Country: None (occurrence: None)
  Receive Date: 20051219
  Receipt Date: 20050502
  Transmission Date: 20060501
  Serious: No
  Sender: FDA-Public Use
  Company Number: US-GLAXOSMITHKLINE-A0556809A

PATIENT
  Age: 56 Year
  Sex: Female

DRUGS (3)
  1. NICODERM CQ [Suspect]
     Dates: start: 20050427
  2. NICORETTE [Suspect]
  3. COMMIT [Suspect]
     Route: 002
     Dates: start: 20050504

REACTIONS (7)
  - APPLICATION SITE ERYTHEMA [None]
  - APPLICATION SITE IRRITATION [None]
  - APPLICATION SITE PRURITUS [None]
  - MUSCLE SPASMS [None]
  - NECK PAIN [None]
  - SALIVARY HYPERSECRETION [None]
  - THROAT TIGHTNESS [None]
